FAERS Safety Report 21098526 (Version 1)
Quarter: 2022Q3

REPORT INFORMATION
  Report Type: Spontaneous
  Country: US (occurrence: US)
  Receive Date: 20220719
  Receipt Date: 20220719
  Transmission Date: 20221027
  Serious: No
  Sender: FDA-Public Use
  Company Number: US-UROGEN PHARMA LTD.-2022-UGN-000060

PATIENT

DRUGS (6)
  1. JELMYTO [Suspect]
     Active Substance: MITOMYCIN
     Indication: Transitional cell cancer of the renal pelvis and ureter
     Dosage: 10 ML (MILLILITER) ONE TIME PER WEEK (INSTILLATION)
     Dates: start: 20220504, end: 20220504
  2. JELMYTO [Suspect]
     Active Substance: MITOMYCIN
     Dosage: 10 ML (MILLILITER) ONE TIME PER WEEK (INSTILLATION)
     Dates: start: 20220511, end: 20220511
  3. JELMYTO [Suspect]
     Active Substance: MITOMYCIN
     Dosage: 10 ML (MILLILITER) ONE TIME PER WEEK (INSTILLATION)
     Dates: start: 20220518, end: 20220518
  4. JELMYTO [Suspect]
     Active Substance: MITOMYCIN
     Dosage: 10 ML (MILLILITER) ONE TIME PER WEEK (INSTILLATION)
     Dates: start: 20220525, end: 20220525
  5. JELMYTO [Suspect]
     Active Substance: MITOMYCIN
     Dosage: 10 ML (MILLILITER) ONE TIME PER WEEK (INSTILLATION)
     Dates: start: 20220601, end: 20220601
  6. JELMYTO [Suspect]
     Active Substance: MITOMYCIN
     Dosage: 10 ML (MILLILITER) ONE TIME PER WEEK (INSTILLATION)
     Dates: start: 20220608, end: 20220608

REACTIONS (1)
  - Hypersensitivity [Recovering/Resolving]

NARRATIVE: CASE EVENT DATE: 20220601
